FAERS Safety Report 15785847 (Version 1)
Quarter: 2019Q1

REPORT INFORMATION
  Report Type: Spontaneous
  Country: CA (occurrence: CA)
  Receive Date: 20190101
  Receipt Date: 20190101
  Transmission Date: 20190417
  Serious: No
  Sender: FDA-Public Use
  Company Number: None

PATIENT
  Age: 49 Year
  Sex: Male
  Weight: 56.25 kg

DRUGS (3)
  1. VITAMINS B12 [Concomitant]
  2. VITAMINS CENTRUM [Concomitant]
  3. BIKTARVY [Suspect]
     Active Substance: BICTEGRAVIR SODIUM\EMTRICITABINE\TENOFOVIR ALAFENAMIDE FUMARATE
     Indication: HIV INFECTION
     Route: 048
     Dates: start: 20181029

REACTIONS (4)
  - Erythema [None]
  - Peripheral vascular disorder [None]
  - Peripheral coldness [None]
  - Limb discomfort [None]

NARRATIVE: CASE EVENT DATE: 20190101
